FAERS Safety Report 10451583 (Version 1)
Quarter: 2014Q3

REPORT INFORMATION
  Report Type: Spontaneous
  Country: US (occurrence: US)
  Receive Date: 20140914
  Receipt Date: 20140914
  Transmission Date: 20150326
  Serious: Yes (Other)
  Sender: FDA-Public Use
  Company Number: US-009507513-1409USA003200

PATIENT
  Age: 53 Year
  Sex: Female

DRUGS (5)
  1. OLMESARTAN MEDOXOMIL [Interacting]
     Active Substance: OLMESARTAN MEDOXOMIL
     Indication: HYPERTENSION
     Dosage: 40 MG, QD
  2. HYDROCHLOROTHIAZIDE. [Interacting]
     Active Substance: HYDROCHLOROTHIAZIDE
     Indication: HYPERTENSION
     Dosage: 25 MG, QD
  3. PRINIVIL [Suspect]
     Active Substance: LISINOPRIL
     Indication: HYPERTENSION
     Dosage: 20 MG, QD
  4. CELECOXIB. [Interacting]
     Active Substance: CELECOXIB
     Indication: SURGERY
     Dosage: 200 MG, UNK
  5. FUROSEMIDE. [Interacting]
     Active Substance: FUROSEMIDE
     Indication: HYPERTENSION
     Dosage: 40 MG, QD

REACTIONS (2)
  - Renal failure acute [Recovered/Resolved]
  - Drug interaction [Recovered/Resolved]
